FAERS Safety Report 8026017-6 (Version None)
Quarter: 2012Q1

REPORT INFORMATION
  Report Type: 
  Country: None (occurrence: None)
  Receive Date: 20120105
  Receipt Date: 20110131
  Transmission Date: 20120608
  Serious: No
  Sender: FDA-Public Use
  Company Number: US-ABBOTT-11P-163-0699602-00

PATIENT
  Sex: Female
  Weight: 70.37 kg

DRUGS (4)
  1. VITAMIN TAB [Concomitant]
     Indication: PRODUCT USED FOR UNKNOWN INDICATION
  2. PLAVIX [Concomitant]
     Indication: STENT PLACEMENT
  3. SYNTHROID [Suspect]
     Indication: HYPOTHYROIDISM
     Dates: start: 20100301
  4. BENAZEPRIL/HCTZ [Concomitant]
     Indication: BLOOD PRESSURE
     Dosage: 20/25 MG DAILY
     Dates: start: 20110101

REACTIONS (2)
  - RASH [None]
  - URTICARIA [None]
